FAERS Safety Report 16744631 (Version 2)
Quarter: 2019Q4

REPORT INFORMATION
  Report Type: Spontaneous
  Country: US (occurrence: US)
  Receive Date: 20190827
  Receipt Date: 20191114
  Transmission Date: 20200122
  Serious: Yes (Other)
  Sender: FDA-Public Use
  Company Number: US-MYLANLABS-2019M1076335

PATIENT
  Age: 75 Year
  Sex: Female
  Weight: 56 kg

DRUGS (2)
  1. FENTANYL TRANSDERMAL SYSTEM [Suspect]
     Active Substance: FENTANYL
     Indication: CERVICAL SPINAL STENOSIS
     Dosage: UNK
     Route: 062
     Dates: start: 20190806, end: 20190807
  2. FENTANYL TRANSDERMAL SYSTEM [Suspect]
     Active Substance: FENTANYL
     Dosage: UNK

REACTIONS (10)
  - Fatigue [Unknown]
  - Depressed level of consciousness [Recovered/Resolved]
  - Feeling abnormal [Unknown]
  - Herpes zoster [Unknown]
  - Vomiting [Recovered/Resolved]
  - Colitis [Unknown]
  - Somnolence [Unknown]
  - Drug ineffective [Recovered/Resolved]
  - Product label issue [Unknown]
  - Weight decreased [Not Recovered/Not Resolved]

NARRATIVE: CASE EVENT DATE: 20190806
